FAERS Safety Report 9689038 (Version 1)
Quarter: 2013Q4

REPORT INFORMATION
  Report Type: Spontaneous
  Country: US (occurrence: US)
  Receive Date: 20131114
  Receipt Date: 20131114
  Transmission Date: 20140711
  Serious: Yes (Other)
  Sender: FDA-Public Use
  Company Number: US-PFIZER INC-2013322626

PATIENT
  Sex: Male

DRUGS (1)
  1. ADVIL [Suspect]
     Dosage: UNK
     Dates: start: 20131109, end: 20131110

REACTIONS (6)
  - Choking [Unknown]
  - Foreign body [Unknown]
  - Throat irritation [Unknown]
  - Product solubility abnormal [Unknown]
  - Dysphagia [Unknown]
  - Product coating issue [Unknown]
